FAERS Safety Report 7469807-0 (Version None)
Quarter: 2011Q2

REPORT INFORMATION
  Report Type: 
  Country: None (occurrence: None)
  Receive Date: 20110510
  Receipt Date: 20100603
  Transmission Date: 20111010
  Serious: Yes (Other)
  Sender: FDA-Public Use
  Company Number: CO-ROCHE-661442

PATIENT
  Sex: Male
  Weight: 2.4 kg

DRUGS (5)
  1. LOSARTAN [Concomitant]
     Indication: HYPERTENSION
     Dosage: FREQUENCY: BID.
     Route: 064
     Dates: start: 20060101
  2. METOPROLOL SUCCINATE [Concomitant]
     Indication: HYPERTENSION
     Dosage: FREQUENCY: BID.
     Route: 064
     Dates: start: 20060101
  3. ENALAPRIL MALEATE [Concomitant]
     Indication: HYPERTENSION
     Dosage: FREQUENCY: BID.
     Route: 064
     Dates: start: 20060101
  4. DEFLAZACORT [Concomitant]
     Indication: SYSTEMIC LUPUS ERYTHEMATOSUS
     Dosage: FREQUENCY: QD.
     Route: 064
     Dates: start: 20040101
  5. CELLCEPT [Suspect]
     Indication: SYSTEMIC LUPUS ERYTHEMATOSUS
     Dosage: FREQUENCY: BID.
     Route: 064
     Dates: start: 20050101, end: 20091001

REACTIONS (2)
  - RESPIRATORY ACIDOSIS [None]
  - FOETAL DISTRESS SYNDROME [None]
